FAERS Safety Report 21073838 (Version 2)
Quarter: 2022Q3

REPORT INFORMATION
  Report Type: Spontaneous
  Country: US (occurrence: None)
  Receive Date: 20220713
  Receipt Date: 20220826
  Transmission Date: 20221026
  Serious: Yes (Death)
  Sender: FDA-Public Use
  Company Number: US-ROCHE-3136480

PATIENT
  Age: 76 Year
  Sex: Male

DRUGS (1)
  1. ESBRIET [Suspect]
     Active Substance: PIRFENIDONE
     Indication: Idiopathic pulmonary fibrosis
     Dosage: TAKE 3 CAPSULES BY MOUTH 3 TIMES A DAILY WITH FOOD
     Route: 048
     Dates: start: 20220315

REACTIONS (1)
  - Death [Fatal]

NARRATIVE: CASE EVENT DATE: 20220629
